FAERS Safety Report 17571012 (Version 2)
Quarter: 2020Q1

REPORT INFORMATION
  Report Type: Spontaneous
  Country: US (occurrence: US)
  Receive Date: 20200323
  Receipt Date: 20200324
  Transmission Date: 20200409
  Serious: No
  Sender: FDA-Public Use
  Company Number: US-PFIZER INC-2020120724

PATIENT
  Age: 38 Year
  Sex: Female

DRUGS (2)
  1. ZOLOFT [Suspect]
     Active Substance: SERTRALINE HYDROCHLORIDE
     Dosage: 200 MG, DAILY (TAKES 2 100 MG EVERY NIGHT)
  2. ZOLOFT [Suspect]
     Active Substance: SERTRALINE HYDROCHLORIDE
     Indication: CHRONIC FATIGUE SYNDROME
     Dosage: 200 MG, DAILY (2-100MG TABLETS TAKEN DAILY)
     Dates: start: 1995

REACTIONS (4)
  - Chronic fatigue syndrome [Unknown]
  - Off label use [Unknown]
  - Product use in unapproved indication [Unknown]
  - Disease recurrence [Unknown]

NARRATIVE: CASE EVENT DATE: 1995
